FAERS Safety Report 6979956-9 (Version None)
Quarter: 2010Q3

REPORT INFORMATION
  Report Type: 
  Country: None (occurrence: None)
  Receive Date: 20100914
  Receipt Date: 20100701
  Transmission Date: 20110219
  Serious: Yes (Life-Threatening, Hospitalization)
  Sender: FDA-Public Use
  Company Number: US-BAYER-200943241NA

PATIENT
  Age: 19 Year
  Sex: Female
  Weight: 86 kg

DRUGS (3)
  1. YAZ [Suspect]
     Indication: ORAL CONTRACEPTION
     Dates: start: 20070101, end: 20090101
  2. YAZ [Suspect]
     Dates: start: 20070101, end: 20090101
  3. METFORMIN [Concomitant]

REACTIONS (9)
  - ABDOMINAL PAIN UPPER [None]
  - ASTHENIA [None]
  - FATIGUE [None]
  - GALLBLADDER NON-FUNCTIONING [None]
  - NAUSEA [None]
  - ORGAN FAILURE [None]
  - PAIN [None]
  - VOMITING [None]
  - WEIGHT DECREASED [None]
